FAERS Safety Report 18507399 (Version 2)
Quarter: 2020Q4

REPORT INFORMATION
  Report Type: Spontaneous
  Country: RU (occurrence: RU)
  Receive Date: 20201116
  Receipt Date: 20201127
  Transmission Date: 20210114
  Serious: Yes (Death)
  Sender: FDA-Public Use
  Company Number: RU-TOPROL-202000084

PATIENT
  Age: 41 Year
  Sex: Female
  Weight: 89 kg

DRUGS (9)
  1. BETALOC ZOK [Suspect]
     Active Substance: METOPROLOL SUCCINATE
     Indication: SINUS TACHYCARDIA
     Dosage: DURING 3RD TRIMESTER OF PREGNANCY
     Route: 048
     Dates: start: 202007, end: 202008
  2. CHLORHEXIDINE [Suspect]
     Active Substance: CHLORHEXIDINE
     Indication: VAGINAL INFECTION
     Dosage: DURING 1ST TRIMESTER OF PREGNANCY
     Route: 067
     Dates: start: 20200417, end: 20200427
  3. DOPEGYT [Suspect]
     Active Substance: METHYLDOPA
     Indication: HYPERTENSION
     Dosage: DURING 3RD TRIMESTER OF PREGNANCY
     Route: 048
     Dates: start: 20200827, end: 20200901
  4. VIFERON [Suspect]
     Active Substance: INTERFERON ALFA-2B
     Indication: POLYHYDRAMNIOS
     Dosage: 500 MU; DURING 3RD TRIMESTER OF PREGNANCY
     Route: 054
     Dates: start: 20200620, end: 20200625
  5. FOLIC ACID. [Suspect]
     Active Substance: FOLIC ACID
     Indication: PROPHYLAXIS
     Dosage: DURING 1ST TRIMESTER OF PREGNANCY
     Route: 048
     Dates: start: 202004, end: 202005
  6. IODOMARIN 200 [Suspect]
     Active Substance: POTASSIUM IODIDE
     Indication: PROPHYLAXIS
     Dosage: DURING 2ND TRIMESTER OF PREGNANCY
     Route: 048
     Dates: start: 202005, end: 202009
  7. SORBIFER [Suspect]
     Active Substance: FERROUS SULFATE
     Indication: IRON DEFICIENCY
     Dosage: DURING 3RD TRIMESTER OF PREGNANCY
     Route: 048
     Dates: start: 202007, end: 202008
  8. MAGNELIS B6 [Suspect]
     Active Substance: MAGNESIUM LACTATE\PYRIDOXINE HYDROCHLORIDE
     Indication: SEDATION
     Dosage: 2 CAPSULES 2 TIMES A DAY DURING 2ND TRIMESTER OF PREGNANCY
     Route: 048
  9. METOPROLOL. [Suspect]
     Active Substance: METOPROLOL
     Indication: HYPERTENSION
     Dosage: DURING 3RD TRIMESTER OF PREGNANCY
     Dates: start: 20200827, end: 20200901

REACTIONS (1)
  - Foetal death [Fatal]

NARRATIVE: CASE EVENT DATE: 20200901
